FAERS Safety Report 5448287-0 (Version None)
Quarter: 2007Q3

REPORT INFORMATION
  Report Type: 
  Country: None (occurrence: None)
  Receive Date: 20070911
  Receipt Date: 20070903
  Transmission Date: 20080115
  Serious: Yes (Other)
  Sender: FDA-Public Use
  Company Number: PHBS2007RU12248

PATIENT
  Age: 84 Year
  Sex: Female

DRUGS (5)
  1. NACLOF 0.1% (NVO) [Suspect]
     Indication: EYE IRRITATION
     Dates: start: 20070705, end: 20070713
  2. QUINAX [Concomitant]
  3. CORNEREGEL [Concomitant]
  4. EMOXIPIN /01615601/ [Concomitant]
     Indication: CATARACT
     Dates: start: 20070616, end: 20070719
  5. MILDRONATE [Concomitant]
     Indication: INTRACRANIAL PRESSURE INCREASED
     Dates: start: 20070716, end: 20070720

REACTIONS (2)
  - CORNEAL LEUKOMA [None]
  - VISUAL ACUITY REDUCED [None]
